FAERS Safety Report 9059925 (Version 1)
Quarter: 2013Q1

REPORT INFORMATION
  Report Type: Spontaneous
  Country: US (occurrence: None)
  Receive Date: 20130207
  Receipt Date: 20130207
  Transmission Date: 20140127
  Serious: Yes (Hospitalization)
  Sender: FDA-Public Use
  Company Number: None

PATIENT
  Age: 73 Year
  Sex: Female
  Weight: 76 kg

DRUGS (2)
  1. BUSPIRONE [Suspect]
     Indication: DEPRESSION
     Route: 048
     Dates: start: 20121101, end: 20121104
  2. CITALOPRAM [Suspect]
     Indication: DEPRESSION
     Route: 048
     Dates: start: 20121031, end: 20121104

REACTIONS (1)
  - Serotonin syndrome [None]
